FAERS Safety Report 4920066-X (Version None)
Quarter: 2006Q1

REPORT INFORMATION
  Report Type: 
  Country: None (occurrence: None)
  Receive Date: 20060223
  Receipt Date: 20060214
  Transmission Date: 20060701
  Serious: Yes (Hospitalization)
  Sender: FDA-Public Use
  Company Number: BR-AVENTIS-200610965EU

PATIENT
  Age: 96 Year
  Sex: Female
  Weight: 60 kg

DRUGS (7)
  1. ENOXAPARIN SODIUM [Suspect]
     Indication: DRUG USE FOR UNKNOWN INDICATION
     Dates: end: 20060101
  2. LASIX [Concomitant]
  3. CLORANA [Concomitant]
  4. DIGOXIN [Concomitant]
  5. LOSARTAN POTASSIUM [Concomitant]
  6. SPIRONOLACTONE [Concomitant]
  7. HIDANTAL [Concomitant]

REACTIONS (2)
  - CONDITION AGGRAVATED [None]
  - PNEUMONIA [None]
